FAERS Safety Report 4263512-X (Version None)
Quarter: 2004Q1

REPORT INFORMATION
  Report Type: 
  Country: None (occurrence: None)
  Receive Date: 20040105
  Receipt Date: 20031223
  Transmission Date: 20041129
  Serious: Yes (Other)
  Sender: FDA-Public Use
  Company Number: US-BRISTOL-MYERS SQUIBB COMPANY-12464616

PATIENT
  Age: 52 Year
  Sex: Male
  Weight: 91 kg

DRUGS (2)
  1. KENALOG-40 [Suspect]
     Indication: GOUT
     Route: 014
     Dates: start: 20030715, end: 20030715
  2. LIDOCAINE [Concomitant]
     Dosage: DOSE VALUE: 0.05 CC 2%
     Dates: start: 20030715

REACTIONS (12)
  - DRUG HYPERSENSITIVITY [None]
  - DYSPHASIA [None]
  - ERYTHEMA [None]
  - EYE IRRITATION [None]
  - EYE SWELLING [None]
  - FLUSHING [None]
  - HYPERTENSION [None]
  - ORAL PRURITUS [None]
  - STOMATITIS [None]
  - SWELLING FACE [None]
  - THROAT IRRITATION [None]
  - THROAT TIGHTNESS [None]
